FAERS Safety Report 5323853-1 (Version None)
Quarter: 2007Q2

REPORT INFORMATION
  Report Type: 
  Country: None (occurrence: None)
  Receive Date: 20070514
  Receipt Date: 20070508
  Transmission Date: 20071010
  Serious: Yes (Hospitalization)
  Sender: FDA-Public Use
  Company Number: B0470620A

PATIENT
  Sex: Female

DRUGS (3)
  1. ARTIST [Suspect]
     Indication: DRUG USE FOR UNKNOWN INDICATION
     Route: 048
  2. BEPRICOR [Suspect]
     Indication: DRUG USE FOR UNKNOWN INDICATION
     Dosage: 100MG PER DAY
     Route: 048
  3. VASOLAN [Concomitant]

REACTIONS (1)
  - TORSADE DE POINTES [None]
